FAERS Safety Report 25184249 (Version 3)
Quarter: 2025Q2

REPORT INFORMATION
  Report Type: Spontaneous
  Country: PL (occurrence: PL)
  Receive Date: 20250410
  Receipt Date: 20250527
  Transmission Date: 20250716
  Serious: Yes (Other)
  Sender: BAYER HEALTHCARE PHARMACEUTICALS INC.
  Company Number: PL-BAYER-2025A045113

PATIENT
  Age: 65 Year
  Sex: Male

DRUGS (4)
  1. DAROLUTAMIDE [Suspect]
     Active Substance: DAROLUTAMIDE
     Indication: Prostate cancer metastatic
     Dosage: 600 MG, BID
     Route: 048
     Dates: start: 20240809
  2. DAROLUTAMIDE [Suspect]
     Active Substance: DAROLUTAMIDE
     Indication: Hormone-dependent prostate cancer
  3. DOCETAXEL [Suspect]
     Active Substance: DOCETAXEL
     Dates: start: 20240809
  4. RELUGOLIX [Concomitant]
     Active Substance: RELUGOLIX
     Dates: start: 202407

REACTIONS (5)
  - Lung disorder [Unknown]
  - Metastases to bone [Unknown]
  - Prostate cancer [Unknown]
  - Metastases to lymph nodes [Unknown]
  - Blood testosterone decreased [Unknown]

NARRATIVE: CASE EVENT DATE: 20240809
